FAERS Safety Report 9104403 (Version 1)
Quarter: 2013Q1

REPORT INFORMATION
  Report Type: Spontaneous
  Country: HR (occurrence: HR)
  Receive Date: 20130220
  Receipt Date: 20130220
  Transmission Date: 20140127
  Serious: Yes (Hospitalization)
  Sender: FDA-Public Use
  Company Number: PHHY2013HR014835

PATIENT
  Sex: Male

DRUGS (3)
  1. CIPROFLOXACIN [Suspect]
     Indication: PNEUMONIA
     Dosage: 200 MG, QD
     Route: 042
     Dates: start: 20121231, end: 20121231
  2. CIPROFLOXACIN [Suspect]
     Indication: URINARY TRACT INFECTION
  3. CEFTRIAXON [Concomitant]
     Dosage: 2 G, UNK
     Route: 042

REACTIONS (3)
  - Urinary incontinence [Recovered/Resolved]
  - Loss of consciousness [Recovered/Resolved]
  - Grand mal convulsion [Recovered/Resolved]
